FAERS Safety Report 4506502-1 (Version None)
Quarter: 2004Q4

REPORT INFORMATION
  Report Type: 
  Country: None (occurrence: None)
  Receive Date: 20041122
  Receipt Date: 20041115
  Transmission Date: 20050328
  Serious: Yes (Hospitalization)
  Sender: FDA-Public Use
  Company Number: US-ABBOTT-04P-163-0280494-00

PATIENT
  Sex: Female
  Weight: 70.37 kg

DRUGS (14)
  1. HUMIRA [Suspect]
     Indication: RHEUMATOID ARTHRITIS
     Route: 058
     Dates: end: 20040301
  2. HUMIRA [Suspect]
     Route: 058
     Dates: start: 20041001, end: 20041112
  3. HUMAN MIXTARD [Concomitant]
     Indication: DIABETES MELLITUS
     Route: 058
  4. REGULAR ILETIN II [Concomitant]
     Indication: DIABETES MELLITUS
     Route: 058
  5. MORPHINE SULFATE [Concomitant]
     Indication: PAIN
     Route: 048
     Dates: start: 20040401
  6. UNSPECIFIED MEDICATION [Concomitant]
     Indication: CONSTIPATION PROPHYLAXIS
     Route: 048
  7. FUROSEMIDE [Concomitant]
     Indication: DIURETIC THERAPY
     Route: 048
     Dates: start: 20020101
  8. CEPHALEXIN MONOHYDRATE [Concomitant]
     Indication: STAPHYLOCOCCAL INFECTION
     Route: 048
     Dates: start: 20010101
  9. POTASSIUM CHLORIDE [Concomitant]
     Indication: MINERAL SUPPLEMENTATION
     Route: 048
  10. ETODOLAC [Concomitant]
     Indication: RHEUMATOID ARTHRITIS
     Route: 048
     Dates: start: 20020101
  11. LACTULOSE [Concomitant]
     Indication: CONSTIPATION
     Route: 048
  12. ASCORBIC ACID [Concomitant]
     Indication: VITAMIN SUPPLEMENTATION
     Route: 048
  13. MULTI-VITAMINS [Concomitant]
     Indication: VITAMIN SUPPLEMENTATION
     Route: 048
  14. CALCIUM CARBONATE [Concomitant]
     Indication: VITAMIN SUPPLEMENTATION
     Route: 048

REACTIONS (4)
  - ANKLE FRACTURE [None]
  - BLOOD GLUCOSE DECREASED [None]
  - FALL [None]
  - NERVE INJURY [None]
